FAERS Safety Report 4271583-X (Version None)
Quarter: 2004Q1

REPORT INFORMATION
  Report Type: 
  Country: None (occurrence: None)
  Receive Date: 20040113
  Receipt Date: 20031229
  Transmission Date: 20041129
  Serious: Yes (Hospitalization)
  Sender: FDA-Public Use
  Company Number: STA-AE-03-MTX-134

PATIENT
  Sex: Female

DRUGS (9)
  1. RHEUMATREX [Suspect]
     Indication: RHEUMATOID ARTHRITIS
     Dosage: 6 MG X PER 1 WK/ORAL
     Route: 048
     Dates: start: 20000909, end: 20010125
  2. RHEUMATREX [Suspect]
     Indication: RHEUMATOID ARTHRITIS
     Dosage: 1.2 4 MG 1 X PER 1 WK/ORAL
     Route: 048
     Dates: start: 20010126, end: 20010427
  3. RHEUMATREX [Suspect]
     Indication: RHEUMATOID ARTHRITIS
     Dosage: 8 MG 1 X PER 1 WK/ORAL
     Route: 048
     Dates: start: 20011116, end: 20020307
  4. RHEUMATREX [Suspect]
     Indication: RHEUMATOID ARTHRITIS
     Dosage: 4MG 1 X PER 1 WK/ORAL
     Route: 048
     Dates: start: 20020208, end: 20030704
  5. VOLTAREN [Concomitant]
  6. CYTOTEC [Concomitant]
  7. PREDNISOLONE [Concomitant]
  8. METHYCOBAL (MECOBALAMIN) [Concomitant]
  9. DEPAS (ETIZOLAM) [Concomitant]

REACTIONS (8)
  - ANAEMIA [None]
  - DECREASED APPETITE [None]
  - DIARRHOEA [None]
  - PLATELET COUNT ABNORMAL [None]
  - PYREXIA [None]
  - RENAL IMPAIRMENT [None]
  - URINARY TRACT INFECTION [None]
  - WHITE BLOOD CELL COUNT DECREASED [None]
